FAERS Safety Report 6428213-8 (Version None)
Quarter: 2009Q4

REPORT INFORMATION
  Report Type: 
  Country: None (occurrence: None)
  Receive Date: 20091102
  Receipt Date: 20091019
  Transmission Date: 20100525
  Serious: Yes (Hospitalization, Other)
  Sender: FDA-Public Use
  Company Number: PAR_03151_2009

PATIENT
  Sex: Female
  Weight: 52.8 kg

DRUGS (10)
  1. CAPOTEN [Suspect]
     Indication: HYPERTENSION
     Dosage: (6.25 MG TID ORAL)
     Route: 048
     Dates: start: 20040924, end: 20041112
  2. CAPOTEN [Suspect]
     Indication: HYPERTENSION
     Dosage: (12.5 MG 1X ORAL)
     Route: 048
     Dates: start: 20041106, end: 20041106
  3. COMTAN [Concomitant]
  4. SELEGILINE HCL [Concomitant]
  5. PAK GEL [Concomitant]
  6. PK-MERZ /00055903/ [Concomitant]
  7. SINEMET [Concomitant]
  8. MADOPAR /00349201/ [Concomitant]
  9. PERGOLIDE MESYLATE [Concomitant]
  10. PARLODEL [Concomitant]

REACTIONS (4)
  - CONDITION AGGRAVATED [None]
  - DRUG EFFECT DECREASED [None]
  - HYPERVENTILATION [None]
  - PARKINSON'S DISEASE [None]
